FAERS Safety Report 8927082 (Version 1)
Quarter: 2012Q4

REPORT INFORMATION
  Report Type: 
  Country: CO (occurrence: CO)
  Receive Date: 20121127
  Receipt Date: 20121127
  Transmission Date: 20130627
  Serious: Yes (Other)
  Sender: FDA-Public Use
  Company Number: CO-PFIZER INC-2012296328

PATIENT
  Age: 83 Year
  Sex: Female

DRUGS (2)
  1. LIPITOR [Suspect]
     Indication: HIGH CHOLESTEROL
     Dosage: 20 mg, once daily
     Route: 048
     Dates: start: 20121105
  2. NORVAS [Suspect]
     Indication: HYPERTENSION
     Dosage: UNK
     Dates: start: 20121105

REACTIONS (1)
  - Melanocytic naevus [Recovering/Resolving]
